FAERS Safety Report 7943615-6 (Version None)
Quarter: 2011Q4

REPORT INFORMATION
  Report Type: 
  Country: None (occurrence: None)
  Receive Date: 20111128
  Receipt Date: 20111124
  Transmission Date: 20120403
  Serious: Yes (Hospitalization)
  Sender: FDA-Public Use
  Company Number: DE-PFIZER INC-2011287341

PATIENT
  Age: 86 Year
  Sex: Female
  Weight: 47 kg

DRUGS (1)
  1. SUNITINIB MALATE [Suspect]
     Indication: RENAL CELL CARCINOMA
     Dosage: 50 MG, UNK
     Route: 048
     Dates: start: 20110610, end: 20110714

REACTIONS (4)
  - HYPONATRAEMIA [None]
  - HYPOKALAEMIA [None]
  - ALKALOSIS HYPOCHLORAEMIC [None]
  - THROMBOCYTOPENIA [None]
